FAERS Safety Report 11626630 (Version 1)
Quarter: 2015Q4

REPORT INFORMATION
  Report Type: Spontaneous
  Country: US (occurrence: US)
  Receive Date: 20151013
  Receipt Date: 20151013
  Transmission Date: 20160304
  Serious: Yes (Hospitalization)
  Sender: FDA-Public Use
  Company Number: US-BAYER-2015-437096

PATIENT
  Age: 64 Year
  Sex: Female

DRUGS (8)
  1. NYSTATIN. [Concomitant]
     Active Substance: NYSTATIN
     Dosage: 100 IU/KG, AS DIRECTED
     Dates: start: 20130503
  2. IBUPROFEN. [Concomitant]
     Active Substance: IBUPROFEN
     Dosage: 600 MG, Q8HR
     Route: 048
     Dates: start: 20130726
  3. NYSTATIN. [Concomitant]
     Active Substance: NYSTATIN
     Dosage: 100 IU/KG, BID PRN
     Route: 061
     Dates: start: 20140929
  4. ONDANSETRON HYDROCHLORIDE. [Concomitant]
     Active Substance: ONDANSETRON HYDROCHLORIDE
     Dosage: 8 MG, QD
     Route: 048
     Dates: start: 20140530
  5. PANTOPRAZOLE SODIUM. [Concomitant]
     Active Substance: PANTOPRAZOLE SODIUM
     Dosage: 20 MG, QD
     Route: 048
     Dates: start: 20150210
  6. NEXAVAR [Suspect]
     Active Substance: SORAFENIB
     Indication: BREAST CANCER METASTATIC
     Dosage: 200 MG, BID
     Route: 048
     Dates: start: 20090731
  7. ENALAPRIL MALEATE. [Concomitant]
     Active Substance: ENALAPRIL MALEATE
     Dosage: 2.5 MG, QD
     Route: 048
     Dates: start: 20120629
  8. NEXIUM [Concomitant]
     Active Substance: ESOMEPRAZOLE MAGNESIUM
     Dosage: 40 MG, QD
     Route: 048
     Dates: start: 20120504

REACTIONS (3)
  - Musculoskeletal pain [None]
  - Hypertension [None]
  - Off label use [None]

NARRATIVE: CASE EVENT DATE: 20090731
